FAERS Safety Report 7389865-1 (Version None)
Quarter: 2011Q1

REPORT INFORMATION
  Report Type: 
  Country: None (occurrence: None)
  Receive Date: 20110325
  Receipt Date: 20110317
  Transmission Date: 20110831
  Serious: Yes (Disabling)
  Sender: FDA-Public Use
  Company Number: 2011SP012262

PATIENT
  Age: 10 Year
  Sex: Male

DRUGS (1)
  1. PREGNYL [Suspect]
     Indication: CRYPTORCHISM
     Dosage: 1500 IU; QW;
     Dates: start: 20020101, end: 20020101

REACTIONS (4)
  - DEVELOPMENTAL DELAY [None]
  - OVERDOSE [None]
  - RESTLESSNESS [None]
  - MENTAL RETARDATION [None]
